FAERS Safety Report 9192237 (Version 1)
Quarter: 2013Q1

REPORT INFORMATION
  Report Type: Spontaneous
  Country: GB (occurrence: None)
  Receive Date: 20130325
  Receipt Date: 20130325
  Transmission Date: 20140127
  Serious: Yes (Other)
  Sender: FDA-Public Use
  Company Number: GER/UKI/13/0028660

PATIENT
  Age: 91 Year
  Sex: Female
  Weight: 62 kg

DRUGS (1)
  1. DONEPEZIL (DONEPEZIL) [Suspect]
     Route: 048
     Dates: start: 20130109

REACTIONS (7)
  - Dizziness [None]
  - Nausea [None]
  - Fatigue [None]
  - Decreased appetite [None]
  - Weight decreased [None]
  - Headache [None]
  - Hypophagia [None]
